FAERS Safety Report 7264626-2 (Version None)
Quarter: 2011Q1

REPORT INFORMATION
  Report Type: 
  Country: None (occurrence: None)
  Receive Date: 20110131
  Receipt Date: 20110126
  Transmission Date: 20110831
  Serious: No
  Sender: FDA-Public Use
  Company Number: US-PFIZER INC-2011018762

PATIENT
  Sex: Female

DRUGS (3)
  1. XANAX [Suspect]
     Indication: PANIC ATTACK
  2. XANAX [Suspect]
     Indication: DEPRESSION
  3. XANAX [Suspect]
     Indication: ANXIETY

REACTIONS (1)
  - DRUG INEFFECTIVE [None]
